FAERS Safety Report 11702535 (Version 1)
Quarter: 2015Q4

REPORT INFORMATION
  Report Type: Spontaneous
  Country: US (occurrence: US)
  Receive Date: 20151105
  Receipt Date: 20151105
  Transmission Date: 20160304
  Serious: No
  Sender: FDA-Public Use
  Company Number: US-BAYER-2015-461148

PATIENT
  Age: 82 Year
  Sex: Female
  Weight: 59.86 kg

DRUGS (8)
  1. OXYTROL FOR WOMEN [Suspect]
     Active Substance: OXYBUTYNIN
     Indication: HYPERTONIC BLADDER
     Dosage: 1 DF, PRN, ONCE EVERY 4 DAYS
     Route: 061
     Dates: start: 20150423
  2. OXYTROL FOR WOMEN [Suspect]
     Active Substance: OXYBUTYNIN
     Indication: HYPERTONIC BLADDER
     Dosage: 1 DF, PRN
     Route: 061
     Dates: start: 20150423
  3. LUTEIN [Concomitant]
     Active Substance: LUTEIN
  4. GARLIC. [Concomitant]
     Active Substance: GARLIC
  5. GLUCOSAMINE SULFATE W/CHONDROITIN [Concomitant]
  6. VITAMIN B12 [Concomitant]
     Active Substance: CYANOCOBALAMIN
  7. CALCIUM [Concomitant]
     Active Substance: CALCIUM
  8. FISH OIL [Concomitant]
     Active Substance: FISH OIL

REACTIONS (4)
  - Drug ineffective [None]
  - Product use issue [None]
  - Expired product administered [None]
  - Urinary incontinence [None]
